FAERS Safety Report 4460929-5 (Version None)
Quarter: 2004Q3

REPORT INFORMATION
  Report Type: 
  Country: None (occurrence: None)
  Receive Date: 20040928
  Receipt Date: 20040611
  Transmission Date: 20050211
  Serious: No
  Sender: FDA-Public Use
  Company Number: US-GLAXOSMITHKLINE-A0514331A

PATIENT
  Age: 74 Year
  Sex: Female
  Weight: 59.1 kg

DRUGS (3)
  1. ADVAIR DISKUS 100/50 [Suspect]
     Indication: ILL-DEFINED DISORDER
     Dosage: 1PUFF TWICE PER DAY
     Route: 055
     Dates: start: 20040605, end: 20040610
  2. LIPITOR [Concomitant]
  3. SYNTHROID [Concomitant]

REACTIONS (2)
  - GINGIVAL PAIN [None]
  - MUSCLE CRAMP [None]
